FAERS Safety Report 5361046-2 (Version None)
Quarter: 2007Q2

REPORT INFORMATION
  Report Type: 
  Country: None (occurrence: None)
  Receive Date: 20070618
  Receipt Date: 20070608
  Transmission Date: 20071010
  Serious: Yes (Hospitalization, Other)
  Sender: FDA-Public Use
  Company Number: SG-ABBOTT-07P-141-0370942-00

PATIENT
  Age: 32 Year
  Sex: Female
  Weight: 85.9 kg

DRUGS (4)
  1. E.E.S. TABLETS [Suspect]
     Indication: PYREXIA
     Route: 048
     Dates: start: 20070101
  2. E.E.S. TABLETS [Suspect]
     Indication: PHARYNGOLARYNGEAL PAIN
  3. NUOFEN [Suspect]
     Indication: PYREXIA
     Route: 048
     Dates: start: 20070123, end: 20070124
  4. AZITHROMYCIN [Interacting]
     Indication: DRUG USE FOR UNKNOWN INDICATION
     Route: 048
     Dates: start: 20070125, end: 20070125

REACTIONS (5)
  - DRUG INTERACTION [None]
  - EYE SWELLING [None]
  - FEELING HOT [None]
  - HYPERHIDROSIS [None]
  - RHINORRHOEA [None]
